FAERS Safety Report 24159855 (Version 2)
Quarter: 2024Q3

REPORT INFORMATION
  Report Type: Spontaneous
  Country: US (occurrence: US)
  Receive Date: 20240731
  Receipt Date: 20240821
  Transmission Date: 20241017
  Serious: No
  Sender: SANOFI AVENTIS
  Company Number: US-SA-SAC20240725000962

PATIENT
  Age: 67 Year
  Sex: Male

DRUGS (5)
  1. DUPIXENT [Suspect]
     Active Substance: DUPILUMAB
     Indication: Dermatitis atopic
     Dosage: 300 MG, QOW
     Route: 058
     Dates: start: 20240308
  2. GABAPENTIN [Concomitant]
     Active Substance: GABAPENTIN
     Dosage: 2 CAPSULE BY MOUTH QAM AND 1 CAPSULE QHS
     Route: 048
     Dates: start: 20210103
  3. GABAPENTIN [Concomitant]
     Active Substance: GABAPENTIN
     Dosage: 1 CAPSULE BY MOUTH QAM AND 2 CAPSULE QHS
     Route: 048
     Dates: start: 20220423
  4. PIMECROLIMUS [Concomitant]
     Active Substance: PIMECROLIMUS
     Dosage: UNK, QHS
     Route: 061
     Dates: start: 20210301
  5. TACROLIMUS [Concomitant]
     Active Substance: TACROLIMUS

REACTIONS (1)
  - Dermatitis atopic [Unknown]

NARRATIVE: CASE EVENT DATE: 20240101
